FAERS Safety Report 7830713-0 (Version None)
Quarter: 2011Q4

REPORT INFORMATION
  Report Type: 
  Country: None (occurrence: None)
  Receive Date: 20111019
  Receipt Date: 20111005
  Transmission Date: 20120403
  Serious: Yes (Hospitalization)
  Sender: FDA-Public Use
  Company Number: KAD201110-000022

PATIENT
  Age: 49 Year
  Sex: Female

DRUGS (7)
  1. FLUCONAZOLE [Suspect]
     Indication: CRYPTOCOCCOSIS
     Route: 048
  2. AMPHOTERICIN B [Suspect]
     Indication: CRYPTOCOCCOSIS
     Route: 042
  3. PREDNISONE [Concomitant]
  4. INFLIXIMAB [Concomitant]
  5. AZATHIOPRINE [Concomitant]
  6. EMPIRICAL ANTIMICROBIAL THERAPY [Concomitant]
  7. MESALAMINE [Concomitant]

REACTIONS (4)
  - DRUG INEFFECTIVE [None]
  - REFUSAL OF TREATMENT BY PATIENT [None]
  - DISEASE RECURRENCE [None]
  - COLITIS ULCERATIVE [None]
